FAERS Safety Report 9102287 (Version 2)
Quarter: 2013Q1

REPORT INFORMATION
  Report Type: Report from Study
  Country: GB (occurrence: GB)
  Receive Date: 20130218
  Receipt Date: 20130325
  Transmission Date: 20140127
  Serious: Yes (Other)
  Sender: FDA-Public Use
  Company Number: GB-ASTRAZENECA-2013SE09423

PATIENT
  Age: 18152 Day
  Sex: Female
  Weight: 93.2 kg

DRUGS (6)
  1. VANDETANIB [Suspect]
     Indication: LUNG CARCINOMA CELL TYPE UNSPECIFIED STAGE IV
     Route: 048
     Dates: start: 20121224, end: 20121227
  2. VANDETANIB [Suspect]
     Indication: LUNG CARCINOMA CELL TYPE UNSPECIFIED STAGE IV
     Route: 048
     Dates: start: 20121228
  3. AZD6244 [Suspect]
     Indication: LUNG CARCINOMA CELL TYPE UNSPECIFIED STAGE IV
     Route: 048
     Dates: start: 20130107
  4. LEVOFLOXACIN [Concomitant]
     Indication: LOWER RESPIRATORY TRACT INFECTION
     Route: 048
     Dates: start: 20121210, end: 20121222
  5. LEVOFLOXACIN [Concomitant]
     Indication: LOWER RESPIRATORY TRACT INFECTION
     Route: 048
     Dates: start: 20130114, end: 20130121
  6. ALBUTEROL SULFATE [Concomitant]
     Indication: DYSPNOEA
     Route: 055
     Dates: start: 2012

REACTIONS (1)
  - Detachment of retinal pigment epithelium [Recovered/Resolved]
